FAERS Safety Report 25486621 (Version 1)
Quarter: 2025Q2

REPORT INFORMATION
  Report Type: Spontaneous
  Country: BR (occurrence: BR)
  Receive Date: 20250627
  Receipt Date: 20250627
  Transmission Date: 20250716
  Serious: Yes (Death, Other)
  Sender: ASTELLAS
  Company Number: BR-SEATTLE GENETICS-2023SGN03858

PATIENT
  Age: 55 Year
  Sex: Male

DRUGS (2)
  1. PADCEV [Suspect]
     Active Substance: ENFORTUMAB VEDOTIN-EJFV
     Indication: Transitional cell cancer of the renal pelvis and ureter
     Route: 065
     Dates: start: 20230418, end: 20230425
  2. PEMBROLIZUMAB [Concomitant]
     Active Substance: PEMBROLIZUMAB
     Indication: Transitional cell cancer of the renal pelvis and ureter
     Route: 065
     Dates: start: 20230418, end: 20230418

REACTIONS (3)
  - Iliac artery rupture [Fatal]
  - Internal haemorrhage [Fatal]
  - Off label use [Unknown]

NARRATIVE: CASE EVENT DATE: 20230507
